FAERS Safety Report 10241996 (Version 1)
Quarter: 2014Q1

REPORT INFORMATION
  Report Type: Spontaneous
  Country: US (occurrence: None)
  Receive Date: 20140306
  Receipt Date: 20140306
  Transmission Date: 20141002
  Serious: Yes (Other)
  Sender: FDA-Public Use
  Company Number: 163-21880-13060952

PATIENT
  Age: 73 Year
  Sex: Male
  Weight: 88.5 kg

DRUGS (6)
  1. REVLIMID (LENALIDOMIDE) (15 MILLIGRAM, CAPSULES) [Suspect]
     Indication: PLASMA CELL MYELOMA
     Route: 048
     Dates: start: 200812
  2. CYCLOPHOSPHAMIDE (UNKNOWN) [Concomitant]
  3. LOMOTIL (TABLETS) [Concomitant]
  4. DEXAMETHASONE (TABLETS) [Concomitant]
  5. ASPIRIN (ACETYLSALICYLIC ACID) (ENTERIC-COATED TALBET) [Concomitant]
  6. OMEPRAZOLE (TABLETS) [Concomitant]

REACTIONS (1)
  - Speech disorder [None]
